FAERS Safety Report 6837983-6 (Version None)
Quarter: 2010Q3

REPORT INFORMATION
  Report Type: 
  Country: None (occurrence: None)
  Receive Date: 20100713
  Receipt Date: 20070530
  Transmission Date: 20110219
  Serious: No
  Sender: FDA-Public Use
  Company Number: US-PFIZER INC-2007043286

PATIENT
  Age: 66 Year
  Sex: Female

DRUGS (11)
  1. CHANTIX [Suspect]
     Indication: SMOKING CESSATION THERAPY
     Dates: start: 20070501
  2. PREVACID [Concomitant]
  3. LOTENSIN [Concomitant]
  4. NEURONTIN [Concomitant]
  5. PLAQUENIL [Concomitant]
  6. CALCITONIN [Concomitant]
  7. CALCIUM [Concomitant]
  8. VITAMIN C [Concomitant]
  9. VITAMIN D [Concomitant]
  10. MULTI-VITAMINS [Concomitant]
  11. ALEVE (CAPLET) [Concomitant]

REACTIONS (2)
  - NAUSEA [None]
  - VOMITING [None]
